FAERS Safety Report 24553159 (Version 1)
Quarter: 2024Q4

REPORT INFORMATION
  Report Type: Spontaneous
  Country: JP (occurrence: JP)
  Receive Date: 20241028
  Receipt Date: 20241028
  Transmission Date: 20250115
  Serious: Yes (Other)
  Sender: GLAXOSMITHKLINE
  Company Number: JP-GSK-JP2024JPN128874

PATIENT

DRUGS (7)
  1. VALTREX [Suspect]
     Active Substance: VALACYCLOVIR HYDROCHLORIDE
     Indication: Herpes zoster
     Dosage: 1000 MG, TID
     Route: 048
     Dates: start: 202405
  2. LYRICA [Concomitant]
     Active Substance: PREGABALIN
     Dosage: UNK
  3. VOLTAREN [Concomitant]
     Active Substance: DICLOFENAC SODIUM
     Dosage: UNK
  4. LAFUTIDINE [Concomitant]
     Active Substance: LAFUTIDINE
     Dosage: UNK
  5. BRIMONIDINE TARTRATE\BRINZOLAMIDE [Concomitant]
     Active Substance: BRIMONIDINE TARTRATE\BRINZOLAMIDE
     Dosage: UNK
  6. CARTEOLOL HYDROCHLORIDE\LATANOPROST [Concomitant]
     Active Substance: CARTEOLOL HYDROCHLORIDE\LATANOPROST
     Dosage: UNK
  7. PIRENOXINE [Concomitant]
     Active Substance: PIRENOXINE
     Dosage: UNK

REACTIONS (13)
  - Encephalopathy [Recovering/Resolving]
  - Altered state of consciousness [Unknown]
  - Depressed level of consciousness [Unknown]
  - Hallucination [Unknown]
  - Meningitis bacterial [Unknown]
  - Toxic encephalopathy [Unknown]
  - Encephalitis [Unknown]
  - Herpes zoster meningitis [Unknown]
  - Nephropathy toxic [Unknown]
  - Mental impairment [Unknown]
  - Renal disorder [Recovering/Resolving]
  - Dysarthria [Unknown]
  - Fall [Unknown]

NARRATIVE: CASE EVENT DATE: 20240501
